FAERS Safety Report 23648944 (Version 1)
Quarter: 2024Q1

REPORT INFORMATION
  Report Type: Spontaneous
  Country: PT (occurrence: PT)
  Receive Date: 20240319
  Receipt Date: 20240319
  Transmission Date: 20240409
  Serious: Yes (Other)
  Sender: FDA-Public Use
  Company Number: None

PATIENT
  Age: 72 Year
  Sex: Male

DRUGS (14)
  1. SYNJARDY [Suspect]
     Active Substance: EMPAGLIFLOZIN\METFORMIN HYDROCHLORIDE
     Indication: Product used for unknown indication
     Dosage: 1 TABLET AT BREAKFAST AND 1 TABLET AT DINNER
     Route: 048
     Dates: start: 20230225
  2. BISOPROLOL [Suspect]
     Active Substance: BISOPROLOL\BISOPROLOL FUMARATE
     Indication: Product used for unknown indication
     Route: 048
     Dates: start: 20230225
  3. AZILSARTAN KAMEDOXOMIL\CHLORTHALIDONE [Suspect]
     Active Substance: AZILSARTAN KAMEDOXOMIL\CHLORTHALIDONE
     Indication: Product used for unknown indication
     Dosage: 1 TABLET ON AN EMPTY STOMACH
     Route: 048
     Dates: start: 20230225
  4. GLICLAZIDE [Suspect]
     Active Substance: GLICLAZIDE
     Indication: Product used for unknown indication
  5. GLICLAZIDE [Suspect]
     Active Substance: GLICLAZIDE
     Dosage: TOOK FOR 1 WEEK
     Dates: start: 202302, end: 202302
  6. GLICLAZIDE [Suspect]
     Active Substance: GLICLAZIDE
     Dosage: TOOK FOR 1 WEEK IN FEBRUARY 2023
     Dates: start: 20230221, end: 20230228
  7. TRULICITY [Suspect]
     Active Substance: DULAGLUTIDE
     Indication: Product used for unknown indication
  8. TRULICITY [Suspect]
     Active Substance: DULAGLUTIDE
     Dosage: SUSPICIOUS START IN 2018
  9. CLOPIDOGREL [Suspect]
     Active Substance: CLOPIDOGREL BISULFATE
     Indication: Product used for unknown indication
  10. CLOPIDOGREL [Suspect]
     Active Substance: CLOPIDOGREL BISULFATE
     Dosage: SUSPICIOUS START IN 2017
  11. Pravastatina + fenofibrato [Concomitant]
     Indication: Product used for unknown indication
  12. FINASTERIDE [Concomitant]
     Active Substance: FINASTERIDE
     Indication: Product used for unknown indication
     Dosage: SUSPICIOUS START IN 2017
  13. FENOFIBRATE\PRAVASTATIN [Concomitant]
     Active Substance: FENOFIBRATE\PRAVASTATIN
     Indication: Product used for unknown indication
  14. FENOFIBRATE\PRAVASTATIN [Concomitant]
     Active Substance: FENOFIBRATE\PRAVASTATIN

REACTIONS (4)
  - Photophobia [Recovered/Resolved]
  - Dizziness [Recovering/Resolving]
  - Drug interaction [Recovering/Resolving]
  - Drug interaction [Recovering/Resolving]

NARRATIVE: CASE EVENT DATE: 20230225
